FAERS Safety Report 10803725 (Version 1)
Quarter: 2015Q1

REPORT INFORMATION
  Report Type: Spontaneous
  Country: US (occurrence: US)
  Receive Date: 20150217
  Receipt Date: 20150217
  Transmission Date: 20150721
  Serious: Yes (Other)
  Sender: FDA-Public Use
  Company Number: US-GLAXOSMITHKLINE-US2015019524

PATIENT
  Age: 60 Year
  Sex: Female

DRUGS (10)
  1. XOPENEX [Concomitant]
     Active Substance: LEVALBUTEROL HYDROCHLORIDE
  2. LISINOPRIL-HCTZ [Concomitant]
     Active Substance: HYDROCHLOROTHIAZIDE\LISINOPRIL
  3. BENADRYL [Concomitant]
     Active Substance: DIPHENHYDRAMINE HYDROCHLORIDE
  4. PROAIR HFA [Concomitant]
     Active Substance: ALBUTEROL SULFATE
  5. ALBUTEROL SOLUTION [Concomitant]
  6. ZONEGRAN [Concomitant]
     Active Substance: ZONISAMIDE
  7. VITAMINS [Concomitant]
     Active Substance: VITAMINS
  8. ADVAIR DISKUS [Suspect]
     Active Substance: FLUTICASONE PROPIONATE\SALMETEROL XINAFOATE
     Indication: BRONCHIAL HYPERREACTIVITY
     Dosage: 250/50
     Route: 055
     Dates: start: 201501, end: 20150209
  9. ZYRTEC [Concomitant]
     Active Substance: CETIRIZINE HYDROCHLORIDE
  10. IBUPROFEN. [Concomitant]
     Active Substance: IBUPROFEN

REACTIONS (8)
  - Off label use [Recovered/Resolved]
  - Underdose [Recovered/Resolved]
  - Pneumonia [Recovered/Resolved]
  - Blood pressure increased [Unknown]
  - Bone density decreased [Unknown]
  - Thirst [Unknown]
  - Aspiration [Recovered/Resolved]
  - Joint dislocation [Recovered/Resolved]

NARRATIVE: CASE EVENT DATE: 2015
